FAERS Safety Report 4323475-5 (Version None)
Quarter: 2004Q1

REPORT INFORMATION
  Report Type: 
  Country: None (occurrence: None)
  Receive Date: 20040325
  Receipt Date: 20031212
  Transmission Date: 20041129
  Serious: Yes (Hospitalization, Other)
  Sender: FDA-Public Use
  Company Number: PHNU2003DE04391

PATIENT
  Age: 64 Year
  Sex: Male
  Weight: 68 kg

DRUGS (4)
  1. ZOMETA [Suspect]
     Indication: MULTIPLE MYELOMA
     Dosage: 4 MG, QMO
     Route: 042
     Dates: start: 20030701, end: 20031001
  2. BENDAMUSTINE [Suspect]
     Indication: CHEMOTHERAPY
     Route: 065
     Dates: start: 20030301, end: 20030801
  3. PREDNISOLONE [Suspect]
     Indication: CHEMOTHERAPY
     Route: 065
     Dates: start: 20030301, end: 20030801
  4. AREDIA [Suspect]
     Indication: MULTIPLE MYELOMA
     Dosage: 60 MG EVERY 4 WEEKS
     Route: 042
     Dates: start: 20030301, end: 20030601

REACTIONS (25)
  - ANAEMIA [None]
  - ARTERIOSCLEROSIS [None]
  - BASE EXCESS NEGATIVE [None]
  - BLOOD BICARBONATE DECREASED [None]
  - BLOOD CREATININE INCREASED [None]
  - BLOOD PH DECREASED [None]
  - BLOOD POTASSIUM INCREASED [None]
  - BRONCHOPNEUMONIA [None]
  - CLOSTRIDIUM DIFFICILE TOXIN TEST [None]
  - CONDITION AGGRAVATED [None]
  - CULTURE URINE POSITIVE [None]
  - ENTEROCOCCAL INFECTION [None]
  - ENTEROCOLITIS [None]
  - HAEMATOCRIT DECREASED [None]
  - HAEMOGLOBIN DECREASED [None]
  - HERPES ZOSTER [None]
  - METABOLIC ACIDOSIS [None]
  - NEOPLASM PROGRESSION [None]
  - NEPHROSCLEROSIS [None]
  - PCO2 DECREASED [None]
  - RENAL DISORDER [None]
  - RENAL FAILURE CHRONIC [None]
  - RENAL TUBULAR NECROSIS [None]
  - THROMBOCYTOPENIA [None]
  - ULTRASOUND KIDNEY ABNORMAL [None]
